FAERS Safety Report 16659248 (Version 2)
Quarter: 2020Q2

REPORT INFORMATION
  Report Type: Report from Study
  Country: US (occurrence: US)
  Receive Date: 20190802
  Receipt Date: 20200515
  Transmission Date: 20200713
  Serious: Yes (Other)
  Sender: FDA-Public Use
  Company Number: US-TEVA-2019-US-1085011

PATIENT
  Age: 50 Year
  Sex: Male

DRUGS (7)
  1. GUANFACINE ER [Concomitant]
     Active Substance: GUANFACINE
  2. GUANFACINE ER [Concomitant]
     Active Substance: GUANFACINE
  3. ARISTADA [Concomitant]
     Active Substance: ARIPIPRAZOLE LAUROXIL
     Route: 030
  4. DEPAKOTE ER [Concomitant]
     Active Substance: DIVALPROEX SODIUM
     Route: 065
  5. TRAZODONE [Concomitant]
     Active Substance: TRAZODONE HYDROCHLORIDE
  6. OMEGA-3 ACIDS [Concomitant]
     Active Substance: OMEGA-3 FATTY ACIDS
  7. CLOZAPINE TEVA [Suspect]
     Active Substance: CLOZAPINE
     Route: 048

REACTIONS (2)
  - Neutropenia [Recovered/Resolved]
  - Granulocytopenia [Unknown]

NARRATIVE: CASE EVENT DATE: 20190719
